FAERS Safety Report 19839071 (Version 1)
Quarter: 2021Q3

REPORT INFORMATION
  Report Type: Spontaneous
  Country: US (occurrence: US)
  Receive Date: 20210915
  Receipt Date: 20210915
  Transmission Date: 20211014
  Serious: Yes (Disabling)
  Sender: FDA-Public Use
  Company Number: None

PATIENT
  Age: 40 Year
  Sex: Female
  Weight: 48.6 kg

DRUGS (1)
  1. TRIAMCINOLONE ACETONIDE. [Suspect]
     Active Substance: TRIAMCINOLONE ACETONIDE
     Indication: ECZEMA
     Route: 061

REACTIONS (9)
  - Oedema peripheral [None]
  - Skin hypertrophy [None]
  - Sensitive skin [None]
  - Body temperature abnormal [None]
  - Neuralgia [None]
  - Eczema [None]
  - Erythema [None]
  - Skin weeping [None]
  - Urinary retention [None]

NARRATIVE: CASE EVENT DATE: 20160216
